FAERS Safety Report 4273313-4 (Version None)
Quarter: 2004Q1

REPORT INFORMATION
  Report Type: 
  Country: None (occurrence: None)
  Receive Date: 20040119
  Receipt Date: 20040107
  Transmission Date: 20041129
  Serious: Yes (Death, Other)
  Sender: FDA-Public Use
  Company Number: PHFR2004GB00515

PATIENT
  Sex: Male

DRUGS (1)
  1. GLEEVEC [Suspect]
     Indication: CHRONIC MYELOID LEUKAEMIA
     Dosage: 4 TABLETS A DAY
     Route: 048

REACTIONS (8)
  - ACUTE LYMPHOCYTIC LEUKAEMIA [None]
  - ARTHRALGIA [None]
  - ASTHENIA [None]
  - BONE MARROW TRANSPLANT [None]
  - DRUG INEFFECTIVE [None]
  - LETHARGY [None]
  - NASOPHARYNGITIS [None]
  - POSTOPERATIVE INFECTION [None]
